FAERS Safety Report 23765907 (Version 2)
Quarter: 2024Q2

REPORT INFORMATION
  Report Type: Report from Study
  Country: US (occurrence: US)
  Receive Date: 20240421
  Receipt Date: 20240514
  Transmission Date: 20240715
  Serious: No
  Sender: FDA-Public Use
  Company Number: US-ABBVIE-5726142

PATIENT
  Age: 52 Year
  Sex: Female
  Weight: 86.182 kg

DRUGS (3)
  1. SKYRIZI [Suspect]
     Active Substance: RISANKIZUMAB-RZAA
     Indication: Psoriasis
     Dosage: WEEK 0?FORM STRENGTH: 150 MILLIGRAM
     Route: 058
     Dates: start: 20210929
  2. SKYRIZI [Suspect]
     Active Substance: RISANKIZUMAB-RZAA
     Dosage: FORM STRENGTH: 150 MILLIGRAM
     Route: 058
     Dates: start: 202201
  3. SKYRIZI [Suspect]
     Active Substance: RISANKIZUMAB-RZAA
     Dosage: WEEK 4?FORM STRENGTH: 150 MILLIGRAM
     Route: 058
     Dates: start: 202110

REACTIONS (14)
  - Abdominal pain [Recovering/Resolving]
  - Sinus operation [Recovered/Resolved]
  - Sinus headache [Recovered/Resolved]
  - White blood cell count decreased [Recovering/Resolving]
  - Lymphadenopathy [Recovered/Resolved]
  - Neutrophil count decreased [Not Recovered/Not Resolved]
  - Serum ferritin increased [Not Recovered/Not Resolved]
  - Blood cholesterol increased [Recovering/Resolving]
  - Arthralgia [Recovering/Resolving]
  - Pelvic floor dysfunction [Recovering/Resolving]
  - Pain in extremity [Unknown]
  - Psoriasis [Unknown]
  - Weight increased [Unknown]
  - Oral herpes [Unknown]

NARRATIVE: CASE EVENT DATE: 20240101
